FAERS Safety Report 9336693 (Version 2)
Quarter: 2014Q1

REPORT INFORMATION
  Report Type: Spontaneous
  Country: US (occurrence: US)
  Receive Date: 20130607
  Receipt Date: 20140109
  Transmission Date: 20141002
  Serious: Yes (Hospitalization, Other)
  Sender: FDA-Public Use
  Company Number: US-ASTELLAS-2013US005928

PATIENT
  Age: 61 Year
  Sex: Male
  Weight: 127 kg

DRUGS (21)
  1. PROGRAF [Suspect]
     Indication: HEART TRANSPLANT REJECTION
     Dosage: 2 MG, BID
     Route: 048
     Dates: start: 2007, end: 20121001
  2. PROGRAF [Suspect]
     Dosage: 2 MG, BID
     Route: 048
     Dates: start: 20130220
  3. RAPAMUNE [Concomitant]
     Indication: IMMUNOSUPPRESSION
     Dosage: 1 MG, UID/QD
     Route: 048
     Dates: start: 2007, end: 20131114
  4. CELLCEPT                           /01275102/ [Concomitant]
     Indication: IMMUNOSUPPRESSION
     Dosage: 1000 MG, BID
     Route: 048
     Dates: start: 20061114
  5. CARDIVAL [Concomitant]
     Indication: PRODUCT USED FOR UNKNOWN INDICATION
     Dosage: 12.5 MG, BID
     Route: 048
  6. LISINOPRIL [Concomitant]
     Indication: PRODUCT USED FOR UNKNOWN INDICATION
     Dosage: 10 MG, UID/QD
     Route: 048
  7. LOVASTATIN [Concomitant]
     Indication: PRODUCT USED FOR UNKNOWN INDICATION
     Dosage: 20 MG, UID/QD
     Route: 048
  8. PREDNISONE [Concomitant]
     Indication: PRODUCT USED FOR UNKNOWN INDICATION
     Dosage: 5 MG, UID/QD
     Route: 048
     Dates: start: 20130220
  9. PREDNISONE [Concomitant]
     Dosage: 2.5 MG, UID/QD
     Route: 048
     Dates: start: 20130220
  10. HUMALOG [Concomitant]
     Indication: PRODUCT USED FOR UNKNOWN INDICATION
     Dosage: 3 U, UID/QD
     Route: 042
  11. NOVOLIN [Concomitant]
     Indication: DIABETES MELLITUS
     Dosage: 10 U, UID/QD
     Route: 042
     Dates: start: 2007
  12. GLIPIZIDE [Concomitant]
     Indication: DIABETES MELLITUS
     Dosage: 5 MG, BID
     Route: 048
  13. METFORMIN [Concomitant]
     Indication: DIABETES MELLITUS
     Dosage: 1000 MG, BID
     Route: 048
     Dates: start: 2007
  14. ALLOPURINOL [Concomitant]
     Indication: GOUT
     Dosage: 300 MG, UID/QD
     Route: 048
     Dates: start: 2006
  15. ALENDRONATE SODIUM [Concomitant]
     Indication: PRODUCT USED FOR UNKNOWN INDICATION
     Dosage: 70 MG, WEEKLY
     Route: 048
  16. BUMETANIDE [Concomitant]
     Indication: PRODUCT USED FOR UNKNOWN INDICATION
     Dosage: 2 MG, TID
     Route: 048
  17. IRON [Concomitant]
     Indication: PRODUCT USED FOR UNKNOWN INDICATION
     Dosage: 65 MG, UID/QD
     Route: 048
  18. MAGNESIUM [Concomitant]
     Indication: PRODUCT USED FOR UNKNOWN INDICATION
     Dosage: 500 MG, BID
     Route: 048
  19. CALCIUM + VITAMIN D [Concomitant]
     Indication: PRODUCT USED FOR UNKNOWN INDICATION
     Dosage: 600 MG, BID
     Route: 048
  20. DAILY MULTIVITAMIN [Concomitant]
     Indication: PRODUCT USED FOR UNKNOWN INDICATION
     Dosage: UNK
     Route: 048
  21. CARVEDILOL [Concomitant]
     Indication: PRODUCT USED FOR UNKNOWN INDICATION
     Dosage: 6.25 MG, BID
     Dates: start: 201002

REACTIONS (4)
  - Drug ineffective [Unknown]
  - Biopsy [Recovered/Resolved]
  - Heart transplant rejection [Recovered/Resolved]
  - Nasopharyngitis [Unknown]
